FAERS Safety Report 5835136-1 (Version None)
Quarter: 2008Q3

REPORT INFORMATION
  Report Type: 
  Country: None (occurrence: None)
  Receive Date: 20080805
  Receipt Date: 20080805
  Transmission Date: 20090109
  Serious: Yes (Hospitalization)
  Sender: FDA-Public Use
  Company Number: None

PATIENT
  Age: 41 Year
  Sex: Male
  Weight: 89.8122 kg

DRUGS (1)
  1. LYRICA [Suspect]
     Indication: NECK PAIN
     Dosage: ONE 3 TIMES DAILY PO
     Route: 048
     Dates: start: 20071125, end: 20071231

REACTIONS (7)
  - ABASIA [None]
  - CHEST PAIN [None]
  - DEAFNESS [None]
  - DIZZINESS [None]
  - PHARMACEUTICAL PRODUCT COMPLAINT [None]
  - TINNITUS [None]
  - TREATMENT NONCOMPLIANCE [None]
